FAERS Safety Report 8786853 (Version 4)
Quarter: 2013Q1

REPORT INFORMATION
  Report Type: Spontaneous
  Country: US (occurrence: US)
  Receive Date: 20120914
  Receipt Date: 20130120
  Transmission Date: 20140127
  Serious: No
  Sender: FDA-Public Use
  Company Number: US-009507513-1209USA005043

PATIENT
  Sex: Female

DRUGS (2)
  1. IMPLANON [Suspect]
     Dosage: UNK
     Dates: start: 20120911
  2. IMPLANON [Suspect]
     Dosage: UNK
     Dates: start: 2012

REACTIONS (2)
  - Complication of device insertion [Unknown]
  - No adverse event [Unknown]
